FAERS Safety Report 10446204 (Version 1)
Quarter: 2014Q3

REPORT INFORMATION
  Report Type: Spontaneous
  Country: DE (occurrence: DE)
  Receive Date: 20140911
  Receipt Date: 20140911
  Transmission Date: 20150326
  Serious: Yes (Death)
  Sender: FDA-Public Use
  Company Number: GXKR2014DE003431

PATIENT

DRUGS (9)
  1. DOXEPIN [Interacting]
     Active Substance: DOXEPIN
  2. ZOPICLONE [Suspect]
     Active Substance: ZOPICLONE
     Dosage: 300 UNK, UNK
  3. SERTRALINE [Interacting]
     Active Substance: SERTRALINE HYDROCHLORIDE
  4. AGOMELATIN [Interacting]
     Active Substance: AGOMELATINE
  5. ATOSIL [Interacting]
     Active Substance: PROMETHAZINE HYDROCHLORIDE
  6. OMEPRAZOLE. [Interacting]
     Active Substance: OMEPRAZOLE
  7. LYRICA [Interacting]
     Active Substance: PREGABALIN
  8. LEVOTHYROXINE [Interacting]
     Active Substance: LEVOTHYROXINE
  9. OLANZAPINE. [Interacting]
     Active Substance: OLANZAPINE

REACTIONS (1)
  - Completed suicide [Fatal]

NARRATIVE: CASE EVENT DATE: 20130516
